FAERS Safety Report 17719756 (Version 6)
Quarter: 2022Q1

REPORT INFORMATION
  Report Type: Report from Study
  Country: CA (occurrence: CA)
  Receive Date: 20200428
  Receipt Date: 20220210
  Transmission Date: 20220424
  Serious: Yes (Other)
  Sender: FDA-Public Use
  Company Number: PHHY2017CA055426

PATIENT
  Age: 46 Year
  Sex: Female

DRUGS (5)
  1. SANDOSTATIN LAR DEPOT [Suspect]
     Active Substance: OCTREOTIDE ACETATE
     Indication: Neuroendocrine tumour
     Dosage: 30 MG, QMO
     Route: 030
     Dates: start: 201701
  2. SANDOSTATIN LAR DEPOT [Suspect]
     Active Substance: OCTREOTIDE ACETATE
     Dosage: 30 MG, Q4W
     Route: 030
     Dates: start: 20170208, end: 20211215
  3. SANDOSTATIN LAR DEPOT [Suspect]
     Active Substance: OCTREOTIDE ACETATE
  4. AFINITOR [Concomitant]
     Active Substance: EVEROLIMUS
     Indication: Product used for unknown indication
     Dosage: 5 MG, QD
     Route: 048
     Dates: start: 202003
  5. AFINITOR [Concomitant]
     Active Substance: EVEROLIMUS
     Dosage: 10 UNK
     Route: 048

REACTIONS (19)
  - Abdominal neoplasm [Unknown]
  - Malignant neoplasm progression [Unknown]
  - Fall [Not Recovered/Not Resolved]
  - Upper limb fracture [Not Recovered/Not Resolved]
  - Metastases to liver [Not Recovered/Not Resolved]
  - Body temperature decreased [Unknown]
  - White blood cell count decreased [Unknown]
  - Malaise [Unknown]
  - Gait disturbance [Unknown]
  - Weight decreased [Unknown]
  - Blood pressure abnormal [Unknown]
  - Depression [Unknown]
  - Hypotension [Unknown]
  - Decreased appetite [Unknown]
  - Nausea [Unknown]
  - Asthenia [Unknown]
  - Anxiety [Unknown]
  - Heart rate increased [Unknown]
  - Drug ineffective [Unknown]

NARRATIVE: CASE EVENT DATE: 20170406
